FAERS Safety Report 4831738-X (Version None)
Quarter: 2005Q4

REPORT INFORMATION
  Report Type: 
  Country: None (occurrence: None)
  Receive Date: 20051118
  Receipt Date: 20051109
  Transmission Date: 20060501
  Serious: Yes (Life-Threatening, Hospitalization, Disabling, Other)
  Sender: FDA-Public Use
  Company Number: US-MERCK-0511USA01482

PATIENT
  Age: 55 Year
  Sex: Male
  Weight: 66 kg

DRUGS (2)
  1. VIOXX [Suspect]
     Indication: SURGERY
     Route: 048
     Dates: start: 20010101, end: 20020101
  2. VIOXX [Suspect]
     Indication: PAIN
     Route: 048
     Dates: start: 20010101, end: 20020101

REACTIONS (1)
  - ACUTE MYOCARDIAL INFARCTION [None]
